FAERS Safety Report 21468791 (Version 1)
Quarter: 2022Q4

REPORT INFORMATION
  Report Type: Report from Study
  Country: US (occurrence: US)
  Receive Date: 20221018
  Receipt Date: 20221018
  Transmission Date: 20230113
  Serious: Yes (Other)
  Sender: FDA-Public Use
  Company Number: US-SAMOHPHARM-2022004885

PATIENT

DRUGS (6)
  1. CYSTADANE [Suspect]
     Active Substance: BETAINE
     Indication: Homocystinuria
     Dosage: 0.2 GRAM, BID
     Route: 048
     Dates: start: 201810
  2. CYSTADANE [Suspect]
     Active Substance: BETAINE
     Dosage: 2.2 GRAM, BID
     Route: 048
     Dates: start: 202106
  3. LACTULOSE [Concomitant]
     Active Substance: LACTULOSE
     Indication: Constipation
     Dosage: 10G/15ML , QD
     Route: 048
  4. RANITIDINE [Concomitant]
     Active Substance: RANITIDINE
     Indication: Gastrooesophageal reflux disease
     Dosage: 0.7 MILLILITER, TID
  5. VITAMIN B6 [Concomitant]
     Active Substance: PYRIDOXINE HYDROCHLORIDE
     Indication: Hypovitaminosis
     Dosage: 100 MILLIGRAM, QD
  6. PRO PHREE [Concomitant]
     Indication: Nutritional supplementation
     Dosage: 56 GRAM, QD

REACTIONS (2)
  - Pneumonia [Recovered/Resolved]
  - Off label use [Recovered/Resolved]

NARRATIVE: CASE EVENT DATE: 20210601
